FAERS Safety Report 5845597-X (Version None)
Quarter: 2008Q3

REPORT INFORMATION
  Report Type: 
  Country: None (occurrence: None)
  Receive Date: 20080814
  Receipt Date: 20080806
  Transmission Date: 20090109
  Serious: Yes (Hospitalization)
  Sender: FDA-Public Use
  Company Number: US-ABBOTT-08P-163-0464489-00

PATIENT
  Age: 38 Year
  Sex: Female
  Weight: 57.658 kg

DRUGS (16)
  1. KALETRA [Suspect]
     Indication: HIV INFECTION
     Dosage: 2 DOSES
     Route: 048
     Dates: start: 20050707
  2. TMC 125 [Concomitant]
     Indication: HIV INFECTION
     Dosage: 2 DOSES
     Route: 048
     Dates: start: 20050707, end: 20080322
  3. ENFUVIRTIDE [Concomitant]
     Indication: HIV INFECTION
     Route: 042
     Dates: start: 20050707
  4. TENOFOVIR [Concomitant]
     Indication: HIV INFECTION
     Route: 048
     Dates: start: 20050707
  5. DIMETICONE [Concomitant]
     Indication: PROPHYLAXIS
  6. DIMETICONE [Concomitant]
     Indication: FLATULENCE
  7. ACYCLOVIR [Concomitant]
     Indication: PROPHYLAXIS
  8. ACYCLOVIR [Concomitant]
     Indication: HERPES SIMPLEX
  9. CITALOPRAM HYDROBROMIDE [Concomitant]
     Indication: POST-TRAUMATIC STRESS DISORDER
  10. CALCIUM [Concomitant]
     Indication: ROUTINE HEALTH MAINTENANCE
  11. TRAZODONE HCL [Concomitant]
     Indication: DEPRESSION
  12. METHADONE HYDROCHLORIDE [Concomitant]
     Indication: NEUROPATHY PERIPHERAL
  13. VITAMIN TAB [Concomitant]
     Indication: VITAMIN SUPPLEMENTATION
  14. VITAMIN B COMPLEX CAP [Concomitant]
     Indication: VITAMIN SUPPLEMENTATION
  15. NAPROXEN [Concomitant]
     Indication: MIGRAINE
  16. FLUCONAZOLE [Concomitant]
     Indication: ANTIFUNGAL PROPHYLAXIS

REACTIONS (5)
  - ABORTION MISSED [None]
  - FOETAL MALFORMATION [None]
  - INTRA-UTERINE DEATH [None]
  - MATERNAL DRUGS AFFECTING FOETUS [None]
  - PREGNANCY [None]
